FAERS Safety Report 4718628-8 (Version None)
Quarter: 2005Q3

REPORT INFORMATION
  Report Type: 
  Country: None (occurrence: None)
  Receive Date: 20050720
  Receipt Date: 20050624
  Transmission Date: 20060218
  Serious: Yes (Hospitalization)
  Sender: FDA-Public Use
  Company Number: FR-GLAXOSMITHKLINE-B0385536A

PATIENT
  Age: 87 Year
  Sex: Female
  Weight: 50 kg

DRUGS (5)
  1. DEROXAT [Suspect]
     Indication: DRUG USE FOR UNKNOWN INDICATION
     Dosage: 20MG PER DAY
     Route: 048
  2. EXELON [Suspect]
     Dosage: 3MG TWICE PER DAY
     Route: 048
  3. TERCIAN CYAMEMAZINE [Suspect]
     Route: 048
  4. ATHYMIL (MIANSERINE) [Suspect]
     Dosage: 30MG PER DAY
     Route: 048
  5. TARDYFERON [Concomitant]
     Route: 065

REACTIONS (6)
  - ABDOMINAL PAIN [None]
  - ABDOMINAL RIGIDITY [None]
  - BLADDER DISTENSION [None]
  - HYPONATRAEMIA [None]
  - URINARY RETENTION [None]
  - VOMITING [None]
